FAERS Safety Report 9932766 (Version 1)
Quarter: 2014Q1

REPORT INFORMATION
  Report Type: Spontaneous
  Country: US (occurrence: None)
  Receive Date: 20140227
  Receipt Date: 20140227
  Transmission Date: 20141002
  Serious: Yes (Hospitalization)
  Sender: FDA-Public Use
  Company Number: None

PATIENT
  Age: 82 Year
  Sex: Female
  Weight: 77.3 kg

DRUGS (8)
  1. WARFARIN 7.5 MG JANTOVEN [Suspect]
     Indication: DEEP VEIN THROMBOSIS
     Dosage: 7.5 MG ( ONE TABLET) QD ORAL
     Route: 048
  2. WARFARIN 7.5 MG JANTOVEN [Suspect]
     Indication: PULMONARY EMBOLISM
     Dosage: 7.5 MG ( ONE TABLET) QD ORAL
     Route: 048
  3. ALBUTEROL [Concomitant]
  4. FLONASE [Concomitant]
  5. ADVAIR [Concomitant]
  6. HYDROMOPHONE [Concomitant]
  7. FOLIC ACID [Concomitant]
  8. LISINOPRIL [Concomitant]

REACTIONS (2)
  - Post procedural haemorrhage [None]
  - Epistaxis [None]
